FAERS Safety Report 8011364-4 (Version None)
Quarter: 2011Q4

REPORT INFORMATION
  Report Type: 
  Country: None (occurrence: None)
  Receive Date: 20111228
  Receipt Date: 20111228
  Transmission Date: 20120403
  Serious: No
  Sender: FDA-Public Use
  Company Number: None

PATIENT
  Sex: Male
  Weight: 74.842 kg

DRUGS (1)
  1. PROSCAR [Suspect]
     Indication: ALOPECIA
     Dosage: 1/4 TABLET
     Route: 048

REACTIONS (13)
  - BREAST ENLARGEMENT [None]
  - RETROGRADE EJACULATION [None]
  - BLOOD OESTROGEN INCREASED [None]
  - ANGER [None]
  - ANXIETY [None]
  - SWELLING [None]
  - AGGRESSION [None]
  - EJACULATION FAILURE [None]
  - AFFECTIVE DISORDER [None]
  - FATIGUE [None]
  - BLOOD TESTOSTERONE DECREASED [None]
  - ERECTILE DYSFUNCTION [None]
  - DEPRESSION [None]
